FAERS Safety Report 7026794-7 (Version None)
Quarter: 2010Q4

REPORT INFORMATION
  Report Type: 
  Country: None (occurrence: None)
  Receive Date: 20101004
  Receipt Date: 20100924
  Transmission Date: 20110411
  Serious: Yes (Hospitalization, Other)
  Sender: FDA-Public Use
  Company Number: BR-ROCHE-729358

PATIENT
  Sex: Female

DRUGS (1)
  1. AVASTIN [Suspect]
     Dosage: THERAPY INTERRUPTED
     Route: 065

REACTIONS (3)
  - BACTERIAL INFECTION [None]
  - EPISTAXIS [None]
  - SKIN LESION [None]
